FAERS Safety Report 23784624 (Version 1)
Quarter: 2024Q2

REPORT INFORMATION
  Report Type: Spontaneous
  Country: US (occurrence: None)
  Receive Date: 20240425
  Receipt Date: 20240425
  Transmission Date: 20240716
  Serious: No
  Sender: FDA-Public Use
  Company Number: None

PATIENT
  Age: 76 Year
  Sex: Male
  Weight: 90.9 kg

DRUGS (2)
  1. XELODA [Suspect]
     Active Substance: CAPECITABINE
  2. ELOXATIN [Suspect]
     Active Substance: OXALIPLATIN

REACTIONS (6)
  - Constipation [None]
  - Hypokalaemia [None]
  - Hyponatraemia [None]
  - Enterocolitis [None]
  - Enteritis [None]
  - Ileus [None]

NARRATIVE: CASE EVENT DATE: 20240415
